FAERS Safety Report 18309311 (Version 1)
Quarter: 2020Q3

REPORT INFORMATION
  Report Type: Spontaneous
  Country: US (occurrence: US)
  Receive Date: 20200925
  Receipt Date: 20200925
  Transmission Date: 20201103
  Serious: No
  Sender: FDA-Public Use
  Company Number: US-ADVANZ PHARMA-202009008741

PATIENT

DRUGS (3)
  1. HYDROXYCHLOROQUINE [Suspect]
     Active Substance: HYDROXYCHLOROQUINE
  2. PREDNISONE 10 MG TABLET [Concomitant]
     Active Substance: PREDNISONE
  3. XELJANZ XR [Concomitant]
     Active Substance: TOFACITINIB CITRATE
     Indication: RHEUMATOID ARTHRITIS
     Dosage: 11 MG, QD WITH FOOD
     Route: 048
     Dates: start: 201912

REACTIONS (1)
  - Abdominal discomfort [Not Recovered/Not Resolved]
